FAERS Safety Report 8585472-3 (Version None)
Quarter: 2012Q3

REPORT INFORMATION
  Report Type: 
  Country: None (occurrence: None)
  Receive Date: 20120810
  Receipt Date: 20111026
  Transmission Date: 20120928
  Serious: No
  Sender: FDA-Public Use
  Company Number: US-GLAXOSMITHKLINE-A0951288A

PATIENT
  Sex: Male

DRUGS (1)
  1. REQUIP XL [Suspect]
     Indication: RESTLESS LEGS SYNDROME
     Dosage: 2MG IN THE MORNING
     Route: 065

REACTIONS (3)
  - MEDICATION RESIDUE [None]
  - PRODUCT QUALITY ISSUE [None]
  - OFF LABEL USE [None]
